FAERS Safety Report 6179579-8 (Version None)
Quarter: 2009Q2

REPORT INFORMATION
  Report Type: 
  Country: None (occurrence: None)
  Receive Date: 20090501
  Receipt Date: 20090501
  Transmission Date: 20091009
  Serious: Yes (Life-Threatening)
  Sender: FDA-Public Use
  Company Number: None

PATIENT
  Age: 65 Year
  Sex: Female
  Weight: 76.6579 kg

DRUGS (1)
  1. AMBIEN [Suspect]
     Indication: INSOMNIA
     Dosage: ONE TABLET10 MG AT BEDTIME PO
     Route: 048
     Dates: start: 20090410, end: 20090428

REACTIONS (5)
  - AGGRESSION [None]
  - AGITATION [None]
  - DEPRESSION SUICIDAL [None]
  - HEADACHE [None]
  - MOOD SWINGS [None]
